FAERS Safety Report 4636998-6 (Version None)
Quarter: 2005Q2

REPORT INFORMATION
  Report Type: 
  Country: None (occurrence: None)
  Receive Date: 20050414
  Receipt Date: 20050330
  Transmission Date: 20051028
  Serious: Yes (Death, Hospitalization, Other)
  Sender: FDA-Public Use
  Company Number: 8009080

PATIENT
  Sex: Female

DRUGS (3)
  1. KEPPRA [Suspect]
     Indication: CONVULSION PROPHYLAXIS
     Dates: start: 20040801
  2. KEPPRA [Suspect]
     Indication: CONVULSION PROPHYLAXIS
     Dosage: 2000 MG/ D PO
     Route: 048
     Dates: end: 20050301
  3. TEMODAR [Concomitant]

REACTIONS (7)
  - APLASTIC ANAEMIA [None]
  - BONE MARROW DEPRESSION [None]
  - DIZZINESS [None]
  - HEPATIC ENZYME INCREASED [None]
  - PANCYTOPENIA [None]
  - SEPSIS [None]
  - SYNCOPE [None]
